FAERS Safety Report 25141453 (Version 1)
Quarter: 2025Q1

REPORT INFORMATION
  Report Type: Spontaneous
  Country: US (occurrence: US)
  Receive Date: 20250331
  Receipt Date: 20250331
  Transmission Date: 20250409
  Serious: Yes (Other)
  Sender: MAYNE
  Company Number: US-MAYNE PHARMA-2025MYN000176

PATIENT

DRUGS (1)
  1. SOLTAMOX [Suspect]
     Active Substance: TAMOXIFEN CITRATE
     Indication: Product used for unknown indication
     Route: 065

REACTIONS (2)
  - Breast mass [Recovered/Resolved]
  - Triple negative breast cancer [Recovered/Resolved]
